FAERS Safety Report 4990381-2 (Version None)
Quarter: 2006Q2

REPORT INFORMATION
  Report Type: 
  Country: None (occurrence: None)
  Receive Date: 20060427
  Receipt Date: 20060418
  Transmission Date: 20061013
  Serious: Yes (Hospitalization)
  Sender: FDA-Public Use
  Company Number: HQWYE696223NOV05

PATIENT
  Age: 37 Year
  Sex: Female

DRUGS (11)
  1. ADVIL [Suspect]
     Indication: PAIN
     Dosage: ORAL
     Route: 048
     Dates: start: 20050822, end: 20050930
  2. ADVIL [Suspect]
     Indication: PYREXIA
     Dosage: ORAL
     Route: 048
     Dates: start: 20050822, end: 20050930
  3. ATARAX [Suspect]
     Dosage: SEE IMAGE
     Dates: start: 20050812, end: 20050812
  4. ATARAX [Suspect]
     Dosage: SEE IMAGE
     Dates: start: 20050816, end: 20050818
  5. ATARAX [Suspect]
     Dosage: SEE IMAGE
     Dates: start: 20050827, end: 20050828
  6. EUPHYTOSE (BALLOTI EXTRACT/CRATAEGUS EXTRACT/KOLA/PAULLINA CUPANA/VALE [Concomitant]
     Indication: SLEEP DISORDER
     Dates: start: 20050530
  7. PENCILLIN NOS [Suspect]
     Indication: CONJUNCTIVITIS
     Dates: start: 20050822, end: 20050826
  8. PENCILLIN NOS [Suspect]
     Indication: PHARYNGITIS
     Dates: start: 20050822, end: 20050826
  9. QUESTRAN [Suspect]
     Dosage: SEE IMAGE
     Dates: start: 20050101, end: 20050921
  10. QUESTRAN [Suspect]
     Dosage: SEE IMAGE
     Dates: start: 20050907
  11. DROSPIRENONE + ETHINYL ESTRADIOL [Concomitant]

REACTIONS (9)
  - ANXIETY [None]
  - BLOOD CHOLESTEROL INCREASED [None]
  - HEPATITIS CHOLESTATIC [None]
  - LYMPHADENOPATHY [None]
  - LYMPHOPENIA [None]
  - PHOTOPHOBIA [None]
  - SERUM FERRITIN INCREASED [None]
  - STEVENS-JOHNSON SYNDROME [None]
  - VISUAL ACUITY REDUCED [None]
